FAERS Safety Report 7530956-X (Version None)
Quarter: 2011Q2

REPORT INFORMATION
  Report Type: 
  Country: None (occurrence: None)
  Receive Date: 20110531
  Receipt Date: 20110517
  Transmission Date: 20111010
  Serious: Yes (Other)
  Sender: FDA-Public Use
  Company Number: FR-1185523

PATIENT
  Age: 71 Year
  Sex: Female
  Weight: 45 kg

DRUGS (4)
  1. AZOPT [Suspect]
     Indication: INTRAOCULAR PRESSURE TEST
     Dosage: (1 GTT QD OU OPHTHALMIC)
     Route: 047
     Dates: start: 20110201, end: 20110328
  2. AVLOCARYL [Concomitant]
  3. LEXOMIL [Concomitant]
  4. LEVOTHYROXINE SODIUM [Concomitant]

REACTIONS (5)
  - INTRAOCULAR PRESSURE INCREASED [None]
  - RED BLOOD CELL COUNT INCREASED [None]
  - HAEMATOCRIT INCREASED [None]
  - BLOOD PRESSURE INCREASED [None]
  - HAEMOGLOBIN INCREASED [None]
